FAERS Safety Report 12763870 (Version 1)
Quarter: 2016Q3

REPORT INFORMATION
  Report Type: Spontaneous
  Country: BR (occurrence: BR)
  Receive Date: 20160920
  Receipt Date: 20160920
  Transmission Date: 20161109
  Serious: Yes (Other)
  Sender: FDA-Public Use
  Company Number: BR-PFIZER INC-2016390253

PATIENT
  Age: 70 Year
  Sex: Female

DRUGS (4)
  1. FRONTAL XR [Suspect]
     Active Substance: ALPRAZOLAM
     Indication: SCHIZOPHRENIA
     Dosage: 2 MG, DAILY
     Dates: start: 2009
  2. SERTRALINE HCL [Concomitant]
     Active Substance: SERTRALINE HYDROCHLORIDE
     Dosage: UNK
     Dates: start: 2009
  3. RISPERIDONE. [Concomitant]
     Active Substance: RISPERIDONE
     Dosage: STRENGTH: 0.5 MG
     Dates: start: 2009
  4. ALPRAZOLAM. [Suspect]
     Active Substance: ALPRAZOLAM
     Indication: SCHIZOPHRENIA
     Dosage: 2 MG, DAILY

REACTIONS (8)
  - Drug ineffective [Not Recovered/Not Resolved]
  - Fall [Recovered/Resolved]
  - Upper limb fracture [Recovered/Resolved]
  - Poor quality sleep [Not Recovered/Not Resolved]
  - Drug dispensing error [Unknown]
  - Parkinson^s disease [Not Recovered/Not Resolved]
  - Malaise [Not Recovered/Not Resolved]
  - Spinal fracture [Recovered/Resolved]

NARRATIVE: CASE EVENT DATE: 2011
